FAERS Safety Report 19237344 (Version 1)
Quarter: 2021Q2

REPORT INFORMATION
  Report Type: Spontaneous
  Country: FR (occurrence: FR)
  Receive Date: 20210510
  Receipt Date: 20210510
  Transmission Date: 20210717
  Serious: Yes (Hospitalization)
  Sender: FDA-Public Use
  Company Number: FR-BAYER-2021-133216

PATIENT
  Age: 33 Year
  Sex: Female

DRUGS (2)
  1. LYMECYCLINE [Suspect]
     Active Substance: LYMECYCLINE
     Indication: ACNE
     Dosage: UNK
     Route: 048
     Dates: start: 20201224, end: 202101
  2. CIPROFLOXACIN. [Suspect]
     Active Substance: CIPROFLOXACIN
     Indication: PYELONEPHRITIS
     Dosage: 1000 MG, QD
     Route: 048
     Dates: start: 202101, end: 202101

REACTIONS (1)
  - Meningitis aseptic [Recovered/Resolved]

NARRATIVE: CASE EVENT DATE: 20210110
